FAERS Safety Report 26024255 (Version 2)
Quarter: 2025Q4

REPORT INFORMATION
  Report Type: Spontaneous
  Country: US (occurrence: US)
  Receive Date: 20251111
  Receipt Date: 20251125
  Transmission Date: 20260118
  Serious: Yes (Other)
  Sender: BRISTOL-MYERS SQUIBB COMPANY
  Company Number: US-BRISTOL-MYERS SQUIBB COMPANY-2025-152303

PATIENT
  Age: 82 Year
  Sex: Female
  Weight: 77.11 kg

DRUGS (3)
  1. OPDIVO [Suspect]
     Active Substance: NIVOLUMAB
     Indication: Metastatic neoplasm
     Dosage: FREQUENCY: EVERY 3 OR 4 WEEKS
  2. OPDIVO [Suspect]
     Active Substance: NIVOLUMAB
     Dosage: FREQUENCY: EVERY 3 OR 4 WEEKS?MONOTHERAPY
  3. YERVOY [Suspect]
     Active Substance: IPILIMUMAB
     Indication: Metastatic neoplasm
     Dosage: FREQUENCY: EVERY 3 OR 4 WEEKS
     Dates: start: 20250418, end: 202510

REACTIONS (4)
  - Malignant neoplasm progression [Unknown]
  - Product colour issue [Unknown]
  - Product physical consistency issue [Unknown]
  - Product size issue [Unknown]

NARRATIVE: CASE EVENT DATE: 20250901
